FAERS Safety Report 5486769-6 (Version None)
Quarter: 2007Q4

REPORT INFORMATION
  Report Type: 
  Country: None (occurrence: None)
  Receive Date: 20071016
  Receipt Date: 20071011
  Transmission Date: 20080405
  Serious: Yes (Hospitalization)
  Sender: FDA-Public Use
  Company Number: B0487098A

PATIENT
  Age: 88 Year
  Sex: Male
  Weight: 51 kg

DRUGS (9)
  1. VALTREX [Suspect]
     Indication: HERPES ZOSTER
     Dosage: 1000MG THREE TIMES PER DAY
     Route: 048
     Dates: start: 20070907, end: 20070912
  2. PRANOPROFEN [Concomitant]
     Dosage: 225MG PER DAY
     Route: 048
     Dates: start: 20070907, end: 20070912
  3. NIPOLAZIN [Concomitant]
     Route: 048
     Dates: start: 20070907, end: 20070911
  4. CONIEL [Concomitant]
     Indication: HYPERTENSION
     Dosage: 2MG PER DAY
     Route: 048
     Dates: start: 19950101
  5. DOXAZOSIN MESYLATE [Concomitant]
     Indication: HYPERTENSION
     Dosage: 1MG PER DAY
     Route: 048
     Dates: start: 19950101
  6. DIART [Concomitant]
     Dosage: 30MG PER DAY
     Route: 048
     Dates: start: 20050101
  7. URINORM [Concomitant]
     Dosage: 50MG PER DAY
     Route: 048
     Dates: start: 19960101
  8. PRAVASTATIN [Concomitant]
     Dosage: 10MG PER DAY
     Route: 048
     Dates: start: 19950101
  9. LEDOLPER [Concomitant]
     Indication: INSOMNIA
     Dosage: .125MG PER DAY
     Route: 048
     Dates: start: 19950101

REACTIONS (5)
  - DEPRESSED LEVEL OF CONSCIOUSNESS [None]
  - DIZZINESS [None]
  - DYSARTHRIA [None]
  - GAIT DISTURBANCE [None]
  - OVERDOSE [None]
